FAERS Safety Report 15329355 (Version 4)
Quarter: 2019Q3

REPORT INFORMATION
  Report Type: Spontaneous
  Country: IE (occurrence: IE)
  Receive Date: 20180829
  Receipt Date: 20190909
  Transmission Date: 20191004
  Serious: Yes (Death)
  Sender: FDA-Public Use
  Company Number: IE-MYLANLABS-2018M1063822

PATIENT
  Age: 24 Year
  Sex: Female

DRUGS (25)
  1. CASPOFUNGIN [Suspect]
     Active Substance: CASPOFUNGIN
     Indication: SEPSIS
  2. VANCOMYCIN [Suspect]
     Active Substance: VANCOMYCIN
     Indication: DEVICE RELATED SEPSIS
     Dosage: UNK
     Route: 065
  3. MIDAZOLAM [Concomitant]
     Active Substance: MIDAZOLAM HYDROCHLORIDE
     Indication: SEIZURE
     Dosage: 10 MILLIGRAM, QH
     Route: 042
  4. LEVETIRACETAM. [Concomitant]
     Active Substance: LEVETIRACETAM
     Indication: STATUS EPILEPTICUS
  5. PHENYTOIN. [Concomitant]
     Active Substance: PHENYTOIN
     Indication: SEIZURE
     Dosage: 100 MILLIGRAM, TID
     Route: 065
  6. VALPROIC ACID. [Interacting]
     Active Substance: VALPROIC ACID
     Dosage: 600 MG, TID
     Route: 040
  7. MEROPENEM. [Interacting]
     Active Substance: MEROPENEM
     Indication: DEVICE RELATED SEPSIS
  8. LACOSAMIDE. [Concomitant]
     Active Substance: LACOSAMIDE
     Indication: STATUS EPILEPTICUS
  9. SODIUM VALPROATE [Concomitant]
     Active Substance: VALPROATE SODIUM
     Indication: SEIZURE
     Dosage: 1800 MG, QD
     Route: 040
  10. LEVETIRACETAM. [Concomitant]
     Active Substance: LEVETIRACETAM
     Indication: SEIZURE
     Dosage: 1500 MILLIGRAM, BID
     Route: 065
  11. MEROPENEM. [Interacting]
     Active Substance: MEROPENEM
     Indication: SEPSIS
     Dosage: UNK
     Route: 040
  12. AZTREONAM. [Concomitant]
     Active Substance: AZTREONAM
     Indication: SEPSIS
     Dosage: UNK
     Route: 065
  13. SODIUM VALPROATE [Concomitant]
     Active Substance: VALPROATE SODIUM
     Indication: STATUS EPILEPTICUS
     Dosage: UNK, DAILY (INCREASED DAILY VPA DOSE)
  14. PIPERACILLIN/TAZOBACTAM [Suspect]
     Active Substance: PIPERACILLIN SODIUM\TAZOBACTAM SODIUM
     Indication: DEVICE RELATED SEPSIS
     Dosage: UNK
     Route: 065
  15. PROPOFOL. [Concomitant]
     Active Substance: PROPOFOL
     Indication: STATUS EPILEPTICUS
  16. PIPERACILLIN/TAZOBACTAM [Suspect]
     Active Substance: PIPERACILLIN SODIUM\TAZOBACTAM SODIUM
     Indication: SEPSIS
  17. VANCOMYCIN [Suspect]
     Active Substance: VANCOMYCIN
     Indication: SEPSIS
  18. MIDAZOLAM [Concomitant]
     Active Substance: MIDAZOLAM HYDROCHLORIDE
     Indication: STATUS EPILEPTICUS
  19. LACOSAMIDE. [Concomitant]
     Active Substance: LACOSAMIDE
     Indication: SEIZURE
     Dosage: 100 MILLIGRAM, BID
     Route: 065
  20. PHENYTOIN. [Concomitant]
     Active Substance: PHENYTOIN
     Indication: STATUS EPILEPTICUS
  21. CASPOFUNGIN [Suspect]
     Active Substance: CASPOFUNGIN
     Indication: DEVICE RELATED SEPSIS
     Dosage: UNK
     Route: 065
  22. VALPROIC ACID. [Interacting]
     Active Substance: VALPROIC ACID
     Indication: STATUS EPILEPTICUS
     Dosage: UNK, QD
     Route: 040
  23. SODIUM THIOPENTAL MITSUBISHI [Concomitant]
     Active Substance: THIOPENTAL SODIUM
     Indication: SEIZURE
     Dosage: UNK
     Route: 065
  24. SODIUM THIOPENTAL MITSUBISHI [Concomitant]
     Active Substance: THIOPENTAL SODIUM
     Indication: STATUS EPILEPTICUS
  25. PROPOFOL. [Concomitant]
     Active Substance: PROPOFOL
     Indication: SEIZURE
     Dosage: UNK
     Route: 042

REACTIONS (3)
  - Drug ineffective [Fatal]
  - Labelled drug-drug interaction medication error [Unknown]
  - Drug level decreased [Not Recovered/Not Resolved]
